FAERS Safety Report 5641790-X (Version None)
Quarter: 2008Q1

REPORT INFORMATION
  Report Type: 
  Country: None (occurrence: None)
  Receive Date: 20080227
  Receipt Date: 20080218
  Transmission Date: 20080703
  Serious: Yes (Other)
  Sender: FDA-Public Use
  Company Number: PHBS2007JP21199

PATIENT
  Age: 9 Year
  Sex: Male

DRUGS (2)
  1. RITALIN [Suspect]
     Indication: ATTENTION DEFICIT/HYPERACTIVITY DISORDER
     Dosage: UNK, UNK
     Route: 048
     Dates: end: 20071216
  2. DEPAKENE [Suspect]

REACTIONS (2)
  - DRUG INTERACTION [None]
  - EPILEPSY [None]
